FAERS Safety Report 14347765 (Version 1)
Quarter: 2018Q1

REPORT INFORMATION
  Report Type: Spontaneous
  Country: US (occurrence: US)
  Receive Date: 20180103
  Receipt Date: 20180103
  Transmission Date: 20180509
  Serious: No
  Sender: FDA-Public Use
  Company Number: US-PFIZER INC-2017554926

PATIENT
  Age: 51 Year
  Sex: Female
  Weight: 63.5 kg

DRUGS (2)
  1. ZYRTEC [Concomitant]
     Active Substance: CETIRIZINE HYDROCHLORIDE
     Indication: HYPERSENSITIVITY
     Dosage: 10 MG, 1X/DAY
     Route: 048
  2. EUCRISA [Suspect]
     Active Substance: CRISABOROLE
     Indication: ECZEMA
     Dosage: UNK, 2X/DAY

REACTIONS (1)
  - Application site pain [Recovering/Resolving]

NARRATIVE: CASE EVENT DATE: 20171227
